FAERS Safety Report 9747689 (Version 1)
Quarter: 2013Q4

REPORT INFORMATION
  Report Type: Spontaneous
  Country: US (occurrence: None)
  Receive Date: 20131206
  Receipt Date: 20131206
  Transmission Date: 20140711
  Serious: Yes (Hospitalization)
  Sender: FDA-Public Use
  Company Number: EUS-2013-00756

PATIENT
  Age: 59 Year
  Sex: Female

DRUGS (8)
  1. ERWINASE [Suspect]
     Indication: NATURAL KILLER-CELL LYMPHOBLASTIC LYMPHOMA
     Dosage: DAYS 2,4,6
     Dates: start: 20130517, end: 20130523
  2. METHOTREXATE (METHOTREXATE) [Suspect]
     Indication: NATURAL KILLER-CELL LYMPHOBLASTIC LYMPHOMA
     Dosage: DAY 1 OF CYCLE
     Dates: start: 20130806, end: 20130806
  3. DEXAMETHASONE (DEXAMETHASONE) [Concomitant]
  4. CALCIUM FOLINATE (CALCIUM FOLINATE) [Concomitant]
  5. CISPLATIN (CDDP) (CISPLATIN) [Concomitant]
  6. ZOPHREN (ONDANSETRON) [Concomitant]
  7. EMDEN (APREPITANT) [Concomitant]
  8. SOLUPRED (PREDNISOLONE) [Concomitant]

REACTIONS (9)
  - Confusional state [None]
  - Abnormal behaviour [None]
  - Pathological gambling [None]
  - Persecutory delusion [None]
  - Aggression [None]
  - Aplasia [None]
  - Blood lactate dehydrogenase increased [None]
  - Alanine aminotransferase increased [None]
  - Gamma-glutamyltransferase increased [None]
